FAERS Safety Report 9921637 (Version 1)
Quarter: 2014Q1

REPORT INFORMATION
  Report Type: Spontaneous
  Country: US (occurrence: None)
  Receive Date: 20140221
  Receipt Date: 20140221
  Transmission Date: 20141002
  Serious: Yes (Hospitalization)
  Sender: FDA-Public Use
  Company Number: None

PATIENT
  Age: 43 Year
  Sex: Female

DRUGS (3)
  1. MEROPENEM [Suspect]
     Indication: WOUND INFECTION
     Dosage: EVERY 8 HRS.
     Route: 042
     Dates: start: 20140108, end: 20140108
  2. MEROPENEM [Suspect]
     Indication: OSTEOMYELITIS
     Dosage: EVERY 8 HRS.
     Route: 042
     Dates: start: 20140108, end: 20140108
  3. MERREM [Suspect]
     Dosage: EVERY 8 HRS.
     Dates: start: 20140108, end: 20140108

REACTIONS (1)
  - Grand mal convulsion [None]
